FAERS Safety Report 23983785 (Version 1)
Quarter: 2024Q2

REPORT INFORMATION
  Report Type: Spontaneous
  Country: US (occurrence: US)
  Receive Date: 20240618
  Receipt Date: 20240618
  Transmission Date: 20240716
  Serious: Yes (Death, Other)
  Sender: FDA-Public Use
  Company Number: US-NOVOPROD-1236860

PATIENT
  Age: 59 Year
  Sex: Male

DRUGS (1)
  1. OZEMPIC [Suspect]
     Active Substance: SEMAGLUTIDE
     Indication: Diabetes mellitus
     Dosage: UNK (1 SHOT WEEKLY)
     Route: 058
     Dates: start: 20231210, end: 20240115

REACTIONS (3)
  - Appendicitis perforated [Fatal]
  - Intestinal perforation [Fatal]
  - Gastrointestinal infection [Fatal]
